FAERS Safety Report 17132147 (Version 1)
Quarter: 2019Q4

REPORT INFORMATION
  Report Type: Spontaneous
  Country: GB (occurrence: GB)
  Receive Date: 20191210
  Receipt Date: 20191210
  Transmission Date: 20200122
  Serious: Yes (Other)
  Sender: FDA-Public Use
  Company Number: GB-AMGEN-GBRSP2019202079

PATIENT
  Age: 36 Year
  Sex: Female

DRUGS (1)
  1. AMGEVITA [Suspect]
     Active Substance: ADALIMUMAB
     Indication: CROHN^S DISEASE
     Dosage: 40 MILLIGRAM, Q2WK
     Route: 058
     Dates: start: 2019

REACTIONS (6)
  - Haemorrhage [Unknown]
  - Alopecia [Unknown]
  - Rash erythematous [Unknown]
  - Burning sensation [Unknown]
  - Pruritus [Unknown]
  - Pain [Unknown]
